FAERS Safety Report 18342125 (Version 2)
Quarter: 2020Q4

REPORT INFORMATION
  Report Type: Report from Study
  Country: None (occurrence: EE)
  Receive Date: 20201005
  Receipt Date: 20201012
  Transmission Date: 20210113
  Serious: Yes (Hospitalization)
  Sender: FDA-Public Use
  Company Number: EE-ABBVIE-20K-221-3589516-00

PATIENT
  Age: 77 Year
  Sex: Male

DRUGS (5)
  1. MADOPAR [Concomitant]
     Active Substance: BENSERAZIDE HYDROCHLORIDE\LEVODOPA
     Indication: PARKINSON^S DISEASE
     Dosage: LEVODOPA 100 MG,  BENSERAZIDUM 50 MG
     Route: 048
  2. DUODOPA [Suspect]
     Active Substance: CARBIDOPA\LEVODOPA
     Indication: PARKINSON^S DISEASE
     Dosage: MORNING DOSE- 5M; L CONTINUOUS DOSE-  3.0 ML/H; EXTRA DOSE2.0ML
     Route: 050
     Dates: start: 20161106
  3. ROPINIROL [Concomitant]
     Active Substance: ROPINIROLE
     Indication: PARKINSON^S DISEASE
     Route: 048
  4. DUODOPA [Suspect]
     Active Substance: CARBIDOPA\LEVODOPA
  5. APOMORFIN [Concomitant]
     Indication: PARKINSON^S DISEASE
     Dosage: 3 MG AS NEEDED
     Route: 058
     Dates: start: 20171106

REACTIONS (4)
  - Knee arthroplasty [Recovered/Resolved]
  - Arthralgia [Unknown]
  - Confusion postoperative [Recovered/Resolved]
  - Postoperative delirium [Recovered/Resolved]

NARRATIVE: CASE EVENT DATE: 2019
